FAERS Safety Report 5984856-7 (Version None)
Quarter: 2008Q4

REPORT INFORMATION
  Report Type: 
  Country: None (occurrence: None)
  Receive Date: 20081202
  Receipt Date: 20081118
  Transmission Date: 20090506
  Serious: Yes (Death, Hospitalization)
  Sender: FDA-Public Use
  Company Number: 002146

PATIENT
  Age: 54 Year
  Sex: Female

DRUGS (5)
  1. BUSULFEX [Suspect]
     Indication: STEM CELL TRANSPLANT
     Dosage: 156 ML
     Route: 042
     Dates: start: 20071011, end: 20071012
  2. FLUDARABINE PHOSPHATE [Concomitant]
  3. VALPROATE SODIUM [Concomitant]
  4. FLGRASTIM (FLGRASTIM) [Concomitant]
  5. CYCLOSPORINE [Concomitant]

REACTIONS (12)
  - ACUTE GRAFT VERSUS HOST DISEASE [None]
  - ANOREXIA [None]
  - BLOOD POTASSIUM DECREASED [None]
  - BLOOD SODIUM DECREASED [None]
  - BLOOD UREA INCREASED [None]
  - BLOOD URIC ACID INCREASED [None]
  - CYTOMEGALOVIRUS ENTEROCOLITIS [None]
  - DIARRHOEA [None]
  - LUNG INFECTION PSEUDOMONAL [None]
  - MALAISE [None]
  - NAUSEA [None]
  - STOMATITIS [None]
